FAERS Safety Report 10965906 (Version 2)
Quarter: 2015Q2

REPORT INFORMATION
  Report Type: Other
  Country: IT (occurrence: IT)
  Receive Date: 20150330
  Receipt Date: 20150407
  Transmission Date: 20150821
  Serious: Yes (Hospitalization)
  Sender: FDA-Public Use
  Company Number: IT-MYLANLABS-2015M1009443

PATIENT

DRUGS (4)
  1. LEVOFLOXACIN. [Suspect]
     Active Substance: LEVOFLOXACIN
     Indication: PRODUCT USED FOR UNKNOWN INDICATION
     Dosage: 500 MG, QD
     Route: 048
     Dates: start: 20150309, end: 20150316
  2. COUMADIN [Interacting]
     Active Substance: WARFARIN SODIUM
     Indication: PRODUCT USED FOR UNKNOWN INDICATION
     Dosage: 1 DF, PRN
     Route: 048
     Dates: start: 20150301, end: 20150316
  3. LASIX [Concomitant]
     Active Substance: FUROSEMIDE
     Indication: PRODUCT USED FOR UNKNOWN INDICATION
     Dosage: UNK
  4. TRIATEC                            /00885601/ [Concomitant]
     Active Substance: RAMIPRIL
     Indication: PRODUCT USED FOR UNKNOWN INDICATION
     Dosage: UNK

REACTIONS (5)
  - Hypocoagulable state [Recovering/Resolving]
  - Anaemia [Recovering/Resolving]
  - Spontaneous haematoma [Recovering/Resolving]
  - Haematuria [Recovering/Resolving]
  - Labelled drug-drug interaction medication error [Recovering/Resolving]

NARRATIVE: CASE EVENT DATE: 20150316
